FAERS Safety Report 10748887 (Version 1)
Quarter: 2015Q1

REPORT INFORMATION
  Report Type: Spontaneous
  Country: US (occurrence: US)
  Receive Date: 20150129
  Receipt Date: 20150129
  Transmission Date: 20150721
  Serious: No
  Sender: FDA-Public Use
  Company Number: US-MALLINCKRODT-T201500888

PATIENT
  Sex: Female

DRUGS (3)
  1. AMPHETAMINE SALTS [Concomitant]
     Active Substance: AMPHETAMINE ASPARTATE\AMPHETAMINE SULFATE\DEXTROAMPHETAMINE SACCHARATE\DEXTROAMPHETAMINE SULFATE
     Dosage: 20 MG, QD
  2. DEXTROAMPHETAMINE SULFATE. [Suspect]
     Active Substance: DEXTROAMPHETAMINE SULFATE
     Indication: PRODUCT USED FOR UNKNOWN INDICATION
     Dosage: 5 MG, QD
     Route: 048
     Dates: start: 20141229
  3. DEXTROAMPHETAMINE                  /00016601/ [Concomitant]
     Active Substance: DEXTROAMPHETAMINE
     Dosage: UNK
     Dates: end: 201412

REACTIONS (4)
  - Headache [Recovered/Resolved]
  - Unevaluable event [Recovered/Resolved]
  - Product substitution issue [None]
  - Dry eye [Recovered/Resolved]
